FAERS Safety Report 5008854-5 (Version None)
Quarter: 2006Q2

REPORT INFORMATION
  Report Type: 
  Country: None (occurrence: None)
  Receive Date: 20060519
  Receipt Date: 20060510
  Transmission Date: 20061013
  Serious: Yes (Other)
  Sender: FDA-Public Use
  Company Number: 2006062408

PATIENT
  Sex: Female

DRUGS (2)
  1. SUDAFED 12 HOUR [Suspect]
     Indication: NASAL CONGESTION
     Dosage: UNSPECIFIED,ORAL
     Route: 048
     Dates: start: 20040101, end: 20040101
  2. TRANYLCYPROMINE SULFATE (TRANYLCYPROMINE SULFATE) [Concomitant]

REACTIONS (4)
  - ASTHENIA [None]
  - DYSSTASIA [None]
  - SLEEP APNOEA SYNDROME [None]
  - SPEECH DISORDER [None]
